FAERS Safety Report 10219324 (Version 2)
Quarter: 2014Q2

REPORT INFORMATION
  Report Type: Spontaneous
  Country: US (occurrence: US)
  Receive Date: 20140605
  Receipt Date: 20140623
  Transmission Date: 20141212
  Serious: Yes (Hospitalization)
  Sender: FDA-Public Use
  Company Number: 2014SP003063

PATIENT
  Age: 57 Year
  Sex: Male

DRUGS (23)
  1. OXALIPLATIN [Suspect]
     Indication: COLON CANCER
     Route: 042
     Dates: start: 20140210, end: 20140220
  2. OXALIPLATIN [Suspect]
     Indication: RECTAL CANCER
     Route: 042
     Dates: start: 20140210, end: 20140220
  3. OXALIPLATIN [Suspect]
     Indication: COLON CANCER
     Route: 042
     Dates: start: 20140321
  4. OXALIPLATIN [Suspect]
     Indication: RECTAL CANCER
     Route: 042
     Dates: start: 20140321
  5. CALCIUM FOLINATE [Suspect]
     Indication: COLON CANCER
     Route: 042
     Dates: start: 20140210, end: 20140220
  6. CALCIUM FOLINATE [Suspect]
     Indication: RECTAL CANCER
     Route: 042
     Dates: start: 20140210, end: 20140220
  7. CALCIUM FOLINATE [Suspect]
     Indication: COLON CANCER
     Route: 042
     Dates: start: 20140321
  8. CALCIUM FOLINATE [Suspect]
     Indication: RECTAL CANCER
     Route: 042
     Dates: start: 20140321
  9. FLUOROURACIL [Suspect]
     Indication: COLON CANCER
     Route: 042
     Dates: start: 20140211, end: 20140220
  10. FLUOROURACIL [Suspect]
     Indication: RECTAL CANCER
     Route: 042
     Dates: start: 20140211, end: 20140220
  11. FLUOROURACIL [Suspect]
     Indication: COLON CANCER
     Route: 042
     Dates: start: 20140321
  12. FLUOROURACIL [Suspect]
     Indication: RECTAL CANCER
     Route: 042
     Dates: start: 20140321
  13. IRINOTECAN [Suspect]
     Indication: COLON CANCER
     Route: 042
     Dates: start: 20140210, end: 20140210
  14. IRINOTECAN [Suspect]
     Indication: RECTAL CANCER
     Route: 042
     Dates: start: 20140210, end: 20140210
  15. IRINOTECAN [Suspect]
     Indication: COLON CANCER
     Route: 042
     Dates: start: 20140321
  16. IRINOTECAN [Suspect]
     Indication: RECTAL CANCER
     Route: 042
     Dates: start: 20140321
  17. BEVACIZUMAB [Suspect]
     Indication: COLON CANCER
     Route: 042
     Dates: start: 20140210, end: 20140220
  18. BEVACIZUMAB [Suspect]
     Indication: RECTAL CANCER
     Route: 042
     Dates: start: 20140210, end: 20140220
  19. BEVACIZUMAB [Suspect]
     Indication: COLON CANCER
     Route: 042
     Dates: start: 20140321, end: 20140407
  20. BEVACIZUMAB [Suspect]
     Indication: RECTAL CANCER
     Route: 042
     Dates: start: 20140321, end: 20140407
  21. BEVACIZUMAB [Suspect]
     Indication: COLON CANCER
     Route: 042
     Dates: start: 20140421
  22. BEVACIZUMAB [Suspect]
     Indication: RECTAL CANCER
     Route: 042
     Dates: start: 20140421
  23. LISINOPRIL [Concomitant]
     Dates: start: 2009

REACTIONS (2)
  - Large intestinal obstruction [Recovered/Resolved]
  - Hypertension [Recovered/Resolved]
